FAERS Safety Report 7831159-1 (Version None)
Quarter: 2011Q4

REPORT INFORMATION
  Report Type: 
  Country: None (occurrence: None)
  Receive Date: 20111021
  Receipt Date: 20111007
  Transmission Date: 20120403
  Serious: Yes (Other)
  Sender: FDA-Public Use
  Company Number: US-ROCHE-1006050

PATIENT
  Age: 65 Year
  Sex: Male

DRUGS (5)
  1. PREDNISONE [Concomitant]
  2. TOCILIZUMAB [Suspect]
     Indication: RHEUMATOID ARTHRITIS
     Dosage: DELAYED (ONE MONTH)
  3. TOCILIZUMAB [Suspect]
     Dosage: HELD FOR 2 MONTHS
  4. TOCILIZUMAB [Suspect]
     Dosage: REINTRODUCED
  5. PREDNISONE [Concomitant]

REACTIONS (2)
  - ULCERATIVE KERATITIS [None]
  - EOSINOPHILIA [None]
